FAERS Safety Report 8169538 (Version 2)
Quarter: 2012Q4

REPORT INFORMATION
  Report Type: Report from Study
  Country: JP (occurrence: JP)
  Receive Date: 20111005
  Receipt Date: 20121106
  Transmission Date: 20130627
  Serious: Yes (Other)
  Sender: FDA-Public Use
  Company Number: PHHY2011JP61026

PATIENT
  Age: 45 Year
  Sex: Female

DRUGS (30)
  1. LEPONEX / CLOZARIL [Suspect]
     Indication: SCHIZOPHRENIA, PARANOID TYPE
     Dosage: 12.5 mg, UNK
     Route: 048
     Dates: start: 20100901, end: 20100902
  2. LEPONEX / CLOZARIL [Suspect]
     Dosage: 25 mg, UNK
     Route: 048
     Dates: start: 20100903, end: 20100904
  3. LEPONEX / CLOZARIL [Suspect]
     Dosage: 50 mg, UNK
     Route: 048
     Dates: start: 20100905, end: 20100907
  4. LEPONEX / CLOZARIL [Suspect]
     Dosage: 75 mg, UNK
     Route: 048
     Dates: start: 20100908, end: 20100909
  5. LEPONEX / CLOZARIL [Suspect]
     Dosage: 100 mg, UNK
     Route: 048
     Dates: start: 20100910, end: 20100911
  6. LEPONEX / CLOZARIL [Suspect]
     Dosage: 125 mg, UNK
     Route: 048
     Dates: start: 20100912, end: 20100914
  7. LEPONEX / CLOZARIL [Suspect]
     Dosage: 150 mg, UNK
     Route: 048
     Dates: start: 20100915, end: 20100917
  8. LEPONEX / CLOZARIL [Suspect]
     Dosage: 175 mg, UNK
     Route: 048
     Dates: start: 20100918, end: 20100921
  9. LEPONEX / CLOZARIL [Suspect]
     Dosage: 200 mg, UNK
     Route: 048
     Dates: start: 20100922, end: 20101005
  10. LEPONEX / CLOZARIL [Suspect]
     Dosage: 250 mg, UNK
     Route: 048
     Dates: start: 20101006, end: 20101012
  11. LEPONEX / CLOZARIL [Suspect]
     Dosage: 300 mg, UNK
     Route: 048
     Dates: start: 20101013, end: 20101026
  12. LEPONEX / CLOZARIL [Suspect]
     Dosage: 350 mg, UNK
     Route: 048
     Dates: start: 20101027, end: 20101123
  13. LEPONEX / CLOZARIL [Suspect]
     Dosage: 400 mg, UNK
     Route: 048
     Dates: start: 20101124, end: 20110118
  14. LEPONEX / CLOZARIL [Suspect]
     Dosage: 450 mg, UNK
     Route: 048
     Dates: start: 20110119, end: 20110206
  15. LEPONEX / CLOZARIL [Suspect]
     Dosage: 500 mg, UNK
     Route: 048
     Dates: start: 20110207, end: 20110703
  16. LEPONEX / CLOZARIL [Suspect]
     Dosage: 300 mg, UNK
     Route: 048
     Dates: start: 20110704, end: 20110901
  17. PERPHENAZINE MALEATE [Concomitant]
     Indication: SCHIZOPHRENIA, PARANOID TYPE
     Dosage: 8 mg, UNK
     Route: 048
     Dates: start: 20100827, end: 20100909
  18. PERPHENAZINE MALEATE [Concomitant]
     Dosage: 4 mg, UNK
     Route: 048
  19. PERPHENAZINE MALEATE [Concomitant]
     Dosage: 8 mg, UNK
     Route: 048
     Dates: end: 20100909
  20. LITHIUM CARBONATE [Concomitant]
     Indication: SCHIZOPHRENIA, PARANOID TYPE
     Dosage: 800 mg, UNK
     Route: 048
     Dates: start: 20100915, end: 20110901
  21. LITHIUM CARBONATE [Concomitant]
     Dosage: 600 mg, UNK
     Route: 048
  22. LITHIUM CARBONATE [Concomitant]
     Dosage: 600 mg, UNK
     Route: 048
  23. AMOXAN [Concomitant]
     Indication: SCHIZOPHRENIA, PARANOID TYPE
     Dosage: 50 mg, UNK
     Route: 048
     Dates: start: 20100723, end: 20100907
  24. AMOXAN [Concomitant]
     Dosage: 25 mg, UNK
     Route: 048
     Dates: end: 20100907
  25. VEGETAMIN [Concomitant]
     Indication: SCHIZOPHRENIA, PARANOID TYPE
     Dosage: 1 DF, UNK
     Route: 048
     Dates: start: 20100407, end: 20100902
  26. SILECE [Concomitant]
     Indication: SCHIZOPHRENIA, PARANOID TYPE
     Dosage: 1 mg, UNK
     Route: 048
     Dates: start: 20100709, end: 20101026
  27. PYRETHIA [Concomitant]
     Indication: SCHIZOPHRENIA
     Dosage: 25 mg, UNK
     Route: 048
     Dates: start: 20100929
  28. PYRETHIA [Concomitant]
     Indication: SALIVARY HYPERSECRETION
     Dosage: 50 mg, UNK
     Route: 048
     Dates: end: 20101005
  29. BUSCOPAN [Concomitant]
     Dosage: 10 mg, UNK
     Route: 048
     Dates: start: 20101208, end: 20110301
  30. VALPROATE SODIUM [Concomitant]
     Indication: CONVULSION PROPHYLAXIS
     Dosage: 600 mg, UNK
     Route: 048
     Dates: start: 20110704, end: 20110901

REACTIONS (4)
  - Grand mal convulsion [Recovering/Resolving]
  - Salivary hypersecretion [Unknown]
  - Blood glucose increased [Recovered/Resolved]
  - Heart rate increased [Recovered/Resolved]
